FAERS Safety Report 5914751-0 (Version None)
Quarter: 2008Q4

REPORT INFORMATION
  Report Type: 
  Country: None (occurrence: None)
  Receive Date: 20081010
  Receipt Date: 20080909
  Transmission Date: 20090506
  Serious: No
  Sender: FDA-Public Use
  Company Number: US-BAYER-200833310NA

PATIENT
  Age: 67 Year
  Sex: Male

DRUGS (4)
  1. LEVITRA [Suspect]
     Indication: ERECTILE DYSFUNCTION
     Dosage: TOTAL DAILY DOSE: 10 MG  UNIT DOSE: 10 MG
     Route: 048
     Dates: start: 20080101, end: 20080101
  2. THYROID MEDICATION [Concomitant]
  3. CLARITIN [Concomitant]
  4. TOPROL-XL [Concomitant]

REACTIONS (1)
  - ERECTILE DYSFUNCTION [None]
